FAERS Safety Report 22043729 (Version 1)
Quarter: 2023Q1

REPORT INFORMATION
  Report Type: Spontaneous
  Country: US (occurrence: US)
  Receive Date: 20230228
  Receipt Date: 20230228
  Transmission Date: 20230417
  Serious: Yes (Death, Other)
  Sender: FDA-Public Use
  Company Number: US-SANOFI-01505201

PATIENT
  Age: 61 Year
  Sex: Male

DRUGS (1)
  1. ELITEK [Suspect]
     Active Substance: RASBURICASE
     Indication: Blood uric acid abnormal
     Dosage: 12.5 MG, TOTAL
     Dates: start: 20230222, end: 20230222

REACTIONS (3)
  - Tumour lysis syndrome [Fatal]
  - Cardiac arrest [Fatal]
  - Product prescribing issue [Unknown]

NARRATIVE: CASE EVENT DATE: 20230222
